FAERS Safety Report 8273534-X (Version None)
Quarter: 2012Q2

REPORT INFORMATION
  Report Type: 
  Country: None (occurrence: None)
  Receive Date: 20120409
  Receipt Date: 20120409
  Transmission Date: 20120825
  Serious: Yes (Other)
  Sender: FDA-Public Use
  Company Number: None

PATIENT
  Age: 37 Year
  Sex: Female

DRUGS (1)
  1. NORGESTREL AND ETHINYL ESTRADIOL [Suspect]
     Indication: CONTRACEPTION
     Dosage: TAKES ONE DAILY BY MOUTH MANY YEARS
     Route: 048

REACTIONS (5)
  - MENSTRUAL DISORDER [None]
  - MATERNAL EXPOSURE TIMING UNSPECIFIED [None]
  - METRORRHAGIA [None]
  - PREGNANCY [None]
  - PREGNANCY ON ORAL CONTRACEPTIVE [None]
